FAERS Safety Report 9705804 (Version 2)
Quarter: 2013Q4

REPORT INFORMATION
  Report Type: Spontaneous
  Country: US (occurrence: US)
  Receive Date: 20131122
  Receipt Date: 20131122
  Transmission Date: 20140711
  Serious: No
  Sender: FDA-Public Use
  Company Number: US-GILEAD-2008-0017821

PATIENT
  Sex: Female

DRUGS (9)
  1. LETAIRIS [Suspect]
     Indication: PULMONARY ARTERIAL HYPERTENSION
     Route: 048
  2. COUMADIN [Concomitant]
     Route: 048
  3. GLIPIZIDE [Concomitant]
     Route: 048
  4. LASIX [Concomitant]
     Route: 048
  5. HYDROCHLOROTHIAZIDE [Concomitant]
     Route: 048
  6. TAMOXIFEN [Concomitant]
     Route: 048
  7. PRILOSEC CR [Concomitant]
     Route: 048
  8. ADVAIR [Concomitant]
  9. POTASSIUM [Concomitant]
     Route: 048

REACTIONS (2)
  - Gait disturbance [None]
  - Blood potassium decreased [None]
